FAERS Safety Report 10660210 (Version 2)
Quarter: 2014Q4

REPORT INFORMATION
  Report Type: Spontaneous
  Country: US (occurrence: US)
  Receive Date: 20141217
  Receipt Date: 20141217
  Transmission Date: 20150529
  Serious: No
  Sender: FDA-Public Use
  Company Number: US-GLAXOSMITHKLINE-A1081028A

PATIENT

DRUGS (1)
  1. VOTRIENT [Suspect]
     Active Substance: PAZOPANIB HYDROCHLORIDE
     Indication: RENAL CANCER
     Dosage: 200 MG TABLET26AUG14 - DOSAGE800MG QD
     Route: 065
     Dates: start: 20140528, end: 20140709

REACTIONS (3)
  - Erythema [Unknown]
  - Hypersensitivity [Unknown]
  - Urticaria [Unknown]
